FAERS Safety Report 9353667 (Version 1)
Quarter: 2013Q2

REPORT INFORMATION
  Report Type: Spontaneous
  Country: US (occurrence: None)
  Receive Date: 20130617
  Receipt Date: 20130617
  Transmission Date: 20140414
  Serious: No
  Sender: FDA-Public Use
  Company Number: None

PATIENT
  Age: 81 Year
  Sex: Female

DRUGS (1)
  1. METFORMIN 1000 MG [Suspect]
     Dosage: 2 PER DAY.
     Dates: start: 201302, end: 201305

REACTIONS (5)
  - Drug ineffective [None]
  - Product odour abnormal [None]
  - Product quality issue [None]
  - Product substitution issue [None]
  - Blood glucose increased [None]
